FAERS Safety Report 8228204-0 (Version None)
Quarter: 2012Q1

REPORT INFORMATION
  Report Type: 
  Country: None (occurrence: None)
  Receive Date: 20120322
  Receipt Date: 20120316
  Transmission Date: 20120608
  Serious: Yes (Hospitalization)
  Sender: FDA-Public Use
  Company Number: DE-ABBOTT-12P-062-0909892-00

PATIENT
  Age: 78 Year
  Sex: Female

DRUGS (9)
  1. MIRTAZAPINE [Suspect]
     Indication: BIPOLAR I DISORDER
  2. SEROQUEL [Suspect]
     Indication: DELIRIUM
     Dosage: 150 MG DAILY
     Route: 048
     Dates: start: 20101101, end: 20111125
  3. MIRTAZAPINE [Suspect]
     Indication: DELIRIUM
     Dosage: 45 MG DAILY
     Route: 048
     Dates: start: 20110606, end: 20111125
  4. VENLAFAXINE HYDROCHLORIDE [Suspect]
     Indication: BIPOLAR I DISORDER
  5. LEVOTHYROXINE SODIUM [Concomitant]
     Indication: PRODUCT USED FOR UNKNOWN INDICATION
     Dates: start: 19700101
  6. VALPROATE SODIUM [Suspect]
     Indication: BIPOLAR I DISORDER
     Dosage: 1500 MG DAILY
     Route: 048
     Dates: start: 20101101, end: 20111125
  7. SEROQUEL [Suspect]
     Indication: BIPOLAR I DISORDER
  8. VENLAFAXINE HYDROCHLORIDE [Suspect]
     Indication: DELIRIUM
     Dosage: 300 MG DAILY
     Route: 048
     Dates: start: 20101101, end: 20111125
  9. AMARYL [Concomitant]
     Indication: PRODUCT USED FOR UNKNOWN INDICATION
     Dates: start: 20101101

REACTIONS (7)
  - HALLUCINATION, VISUAL [None]
  - CONDITION AGGRAVATED [None]
  - CONFUSIONAL STATE [None]
  - FEELING ABNORMAL [None]
  - DELIRIUM [None]
  - FUMBLING [None]
  - JUDGEMENT IMPAIRED [None]
